FAERS Safety Report 4352586-3 (Version None)
Quarter: 2004Q2

REPORT INFORMATION
  Report Type: 
  Country: None (occurrence: None)
  Receive Date: 20040420
  Receipt Date: 20040308
  Transmission Date: 20050107
  Serious: No
  Sender: FDA-Public Use
  Company Number: 2004202555US

PATIENT

DRUGS (1)
  1. SOMAVERT [Suspect]
     Dates: start: 20040122, end: 20040207

REACTIONS (2)
  - FATIGUE [None]
  - INJECTION SITE REACTION [None]
